FAERS Safety Report 13577897 (Version 3)
Quarter: 2017Q2

REPORT INFORMATION
  Report Type: Spontaneous
  Country: BE (occurrence: BE)
  Receive Date: 20170524
  Receipt Date: 20170621
  Transmission Date: 20170830
  Serious: Yes (Other)
  Sender: FDA-Public Use
  Company Number: BE-TAKEDA-2017TUS010928

PATIENT
  Age: 28 Year
  Sex: Male

DRUGS (1)
  1. ENTYVIO [Suspect]
     Active Substance: VEDOLIZUMAB
     Indication: CROHN^S DISEASE
     Dosage: 300 MG, Q4WEEKS
     Route: 042
     Dates: start: 20160318, end: 20161219

REACTIONS (2)
  - Ileal perforation [Unknown]
  - Gastrointestinal anastomotic leak [Unknown]

NARRATIVE: CASE EVENT DATE: 20170105
